FAERS Safety Report 20097134 (Version 1)
Quarter: 2021Q4

REPORT INFORMATION
  Report Type: Spontaneous
  Country: US (occurrence: None)
  Receive Date: 20211120
  Receipt Date: 20211120
  Transmission Date: 20220303
  Serious: Yes (Disabling)
  Sender: FDA-Public Use
  Company Number: None

PATIENT
  Age: 47 Year
  Sex: Male
  Weight: 134.55 kg

DRUGS (1)
  1. LISINOPRIL [Suspect]
     Active Substance: LISINOPRIL
     Indication: Blood pressure measurement
     Dosage: OTHER QUANTITY : 180 TABLET(S);?FREQUENCY : TWICE A DAY;?
     Route: 048
     Dates: start: 20211016, end: 20211116

REACTIONS (4)
  - Malaise [None]
  - Mental disorder [None]
  - Product taste abnormal [None]
  - Product quality issue [None]

NARRATIVE: CASE EVENT DATE: 20211016
